FAERS Safety Report 4837212-9 (Version None)
Quarter: 2005Q4

REPORT INFORMATION
  Report Type: 
  Country: None (occurrence: None)
  Receive Date: 20051122
  Receipt Date: 20051114
  Transmission Date: 20060501
  Serious: Yes (Disabling, Other)
  Sender: FDA-Public Use
  Company Number: HQWYE551715NOV05

PATIENT
  Age: 50 Year
  Sex: Female

DRUGS (1)
  1. EFFEXOR [Suspect]
     Dosage: SEE IMAGE

REACTIONS (7)
  - ABNORMAL BEHAVIOUR [None]
  - ACTIVITIES OF DAILY LIVING IMPAIRED [None]
  - ANGER [None]
  - ANTISOCIAL BEHAVIOUR [None]
  - DRUG DEPENDENCE [None]
  - FRUSTRATION [None]
  - JUDGEMENT IMPAIRED [None]
